FAERS Safety Report 8054276-2 (Version None)
Quarter: 2012Q1

REPORT INFORMATION
  Report Type: 
  Country: None (occurrence: None)
  Receive Date: 20120118
  Receipt Date: 20120106
  Transmission Date: 20120608
  Serious: Yes (Other)
  Sender: FDA-Public Use
  Company Number: PHHO2012CH000813

PATIENT
  Sex: Female
  Weight: 69 kg

DRUGS (1)
  1. ILARIS [Suspect]
     Dosage: 150 MG, UNK
     Dates: start: 20090602

REACTIONS (2)
  - HYPERHIDROSIS [None]
  - WEIGHT INCREASED [None]
